FAERS Safety Report 23482975 (Version 2)
Quarter: 2024Q2

REPORT INFORMATION
  Report Type: Spontaneous
  Country: JP (occurrence: None)
  Receive Date: 20240205
  Receipt Date: 20240426
  Transmission Date: 20240717
  Serious: Yes (Death, Hospitalization, Other)
  Sender: FDA-Public Use
  Company Number: 2024A027418

PATIENT
  Age: 79 Year
  Sex: Female
  Weight: 72 kg

DRUGS (12)
  1. IMFINZI [Suspect]
     Active Substance: DURVALUMAB
     Indication: Hepatocellular carcinoma
     Route: 041
     Dates: start: 20231226, end: 20231226
  2. IMJUDO [Suspect]
     Active Substance: TREMELIMUMAB\TREMELIMUMAB-ACTL
     Indication: Hepatocellular carcinoma
     Route: 041
     Dates: start: 20231226, end: 20231226
  3. BISOPROLOL FUMARATE [Concomitant]
     Active Substance: BISOPROLOL FUMARATE
     Route: 048
     Dates: end: 20240125
  4. INDAPAMIDE [Concomitant]
     Active Substance: INDAPAMIDE
     Route: 048
     Dates: end: 20240125
  5. FEBUXOSTAT [Concomitant]
     Active Substance: FEBUXOSTAT
     Route: 048
     Dates: end: 20240125
  6. AMLODIPINE BESYLATE [Concomitant]
     Active Substance: AMLODIPINE BESYLATE
     Route: 048
     Dates: end: 20240125
  7. TRAMCET [Concomitant]
     Active Substance: ACETAMINOPHEN\TRAMADOL
     Route: 048
     Dates: end: 20240125
  8. CARDENALIN [Concomitant]
     Active Substance: DOXAZOSIN MESYLATE
     Route: 048
     Dates: end: 20240125
  9. VONOPRAZAN FUMARATE [Concomitant]
     Active Substance: VONOPRAZAN FUMARATE
     Route: 048
     Dates: end: 20240125
  10. ENTRESTO [Concomitant]
     Active Substance: SACUBITRIL\VALSARTAN
     Route: 048
     Dates: end: 20240125
  11. MYONAL [Concomitant]
     Route: 048
     Dates: end: 20240125
  12. CALONAL [Concomitant]
     Active Substance: ACETAMINOPHEN
     Route: 048
     Dates: end: 20240125

REACTIONS (8)
  - General physical health deterioration [Fatal]
  - Cardiac failure congestive [Fatal]
  - Malignant neoplasm progression [Fatal]
  - Multiple organ dysfunction syndrome [Fatal]
  - Diarrhoea [Recovered/Resolved]
  - Malaise [Unknown]
  - Dehydration [Unknown]
  - COVID-19 [Unknown]

NARRATIVE: CASE EVENT DATE: 20240101
